FAERS Safety Report 12170355 (Version 1)
Quarter: 2016Q1

REPORT INFORMATION
  Report Type: Report from Study
  Country: US (occurrence: US)
  Receive Date: 20160311
  Receipt Date: 20160311
  Transmission Date: 20160526
  Serious: Yes (Other)
  Sender: FDA-Public Use
  Company Number: US-009507513-1603USA005236

PATIENT

DRUGS (4)
  1. METHOXAMINE HYDROCHLORIDE [Suspect]
     Active Substance: METHOXAMINE HYDROCHLORIDE
     Indication: NEOPLASM MALIGNANT
     Dosage: 125 MG, QD
     Route: 048
  2. METHOXAMINE HYDROCHLORIDE [Suspect]
     Active Substance: METHOXAMINE HYDROCHLORIDE
     Indication: REFRACTORY CANCER
     Dosage: 25 MG, QD
     Route: 048
  3. TEMODAR [Suspect]
     Active Substance: TEMOZOLOMIDE
     Indication: REFRACTORY CANCER
     Dosage: 125 MG/M2, ORAL, ONCE DAILY
     Route: 048
  4. TEMODAR [Suspect]
     Active Substance: TEMOZOLOMIDE
     Dosage: 150 MG/M2, ORAL, ONCE DAILY
     Route: 048

REACTIONS (7)
  - Anaemia [Unknown]
  - Thrombocytopenia [Unknown]
  - Lymphopenia [Unknown]
  - Hypophosphataemia [Unknown]
  - Therapy responder [Unknown]
  - Neutropenia [Unknown]
  - Leukopenia [Unknown]
